FAERS Safety Report 7689274-1 (Version None)
Quarter: 2011Q3

REPORT INFORMATION
  Report Type: 
  Country: None (occurrence: None)
  Receive Date: 20110817
  Receipt Date: 20110808
  Transmission Date: 20111222
  Serious: Yes (Other)
  Sender: FDA-Public Use
  Company Number: US-BAYER-201029793NA

PATIENT
  Age: 18 Year
  Sex: Female
  Weight: 95.238 kg

DRUGS (26)
  1. YASMIN [Suspect]
     Indication: CONTRACEPTION
     Dosage: UNK UNK, UNK
     Route: 048
     Dates: start: 20050101, end: 20070101
  2. ERYTHROMYCIN [Concomitant]
     Dosage: UNK
     Route: 048
     Dates: start: 20010101
  3. MEBENDAZOLE [Concomitant]
     Dosage: UNK
     Route: 048
     Dates: start: 20010101
  4. ACETAMINOPHEN [Concomitant]
     Dosage: UNK
     Route: 048
     Dates: start: 20010101
  5. AMOXICILLIN [Concomitant]
     Dosage: UNK
     Route: 048
     Dates: start: 20010101
  6. LORAZEPAM [Concomitant]
     Dosage: UNK
     Route: 048
     Dates: start: 20060101, end: 20100101
  7. DROSPIRENONE AND ETHINYL ESTRADIOL [Suspect]
     Dosage: UNK
     Dates: start: 20080701, end: 20090901
  8. CYMBALTA [Concomitant]
     Dosage: UNK
     Route: 048
     Dates: start: 20010101
  9. YASMIN [Suspect]
     Indication: POLYCYSTIC OVARIES
  10. MEDROXYPROGESTERONE [Concomitant]
     Dosage: UNK
     Route: 048
     Dates: start: 20010101
  11. AMBIEN CR [Concomitant]
     Dosage: UNK
     Route: 048
     Dates: start: 20010101
  12. FLUOXETINE [Concomitant]
     Dosage: UNK
     Route: 048
     Dates: start: 20010101
  13. AMPHETAMINE AND DEXTROAMPHETAMINE SALTS [Concomitant]
     Dosage: UNK
     Route: 048
     Dates: start: 20010101
  14. VIVOTIF [Concomitant]
     Dosage: UNK
     Route: 048
     Dates: start: 20010101
  15. PREDNISONE [Concomitant]
     Dosage: UNK
     Route: 048
     Dates: start: 20060101, end: 20100101
  16. CALCIUM SUPPLEMENTS [Concomitant]
     Dosage: UNK UNK, QD
     Route: 048
  17. BUPROPION HCL [Concomitant]
     Dosage: UNK
     Route: 048
     Dates: start: 20010101
  18. MICROGESTIN FE 1.5/30 [Concomitant]
     Indication: POLYCYSTIC OVARIES
     Dosage: UNK
     Dates: start: 20060101, end: 20100101
  19. OXYCODONE HCL AND ACETAMINOPHEN [Concomitant]
     Dosage: UNK
     Route: 048
     Dates: start: 20010101
  20. PROTONIX [Concomitant]
     Dosage: UNK
     Route: 048
     Dates: start: 20010101
  21. PROCHLORPERAZINE [Concomitant]
     Dosage: UNK
     Route: 048
     Dates: start: 20010101
  22. HYDROCODONE BITARTRATE AND ACETAMINOPHEN [Concomitant]
     Dosage: UNK
     Route: 048
     Dates: start: 20060101, end: 20100101
  23. VITAMIN D [Concomitant]
     Dosage: UNK UNK, QD
     Route: 048
  24. CITALOPRAM HYDROBROMIDE [Concomitant]
     Dosage: UNK
     Route: 048
     Dates: start: 20010101
  25. ALPRAZOLAM [Concomitant]
     Dosage: UNK
     Route: 048
     Dates: start: 20010101
  26. AZITHROMYCIN [Concomitant]
     Dosage: UNK
     Dates: start: 20060101, end: 20100101

REACTIONS (7)
  - CHOLECYSTITIS CHRONIC [None]
  - GASTROINTESTINAL DISORDER [None]
  - CHOLELITHIASIS [None]
  - IRRITABLE BOWEL SYNDROME [None]
  - STRESS [None]
  - GALLBLADDER DISORDER [None]
  - DIARRHOEA [None]
